FAERS Safety Report 9227716 (Version 1)
Quarter: 2013Q2

REPORT INFORMATION
  Report Type: Spontaneous
  Country: HR (occurrence: HR)
  Receive Date: 20130412
  Receipt Date: 20130412
  Transmission Date: 20140414
  Serious: Yes (Other)
  Sender: FDA-Public Use
  Company Number: HR-ELI_LILLY_AND_COMPANY-HR201302003354

PATIENT
  Age: 42 Year
  Sex: Female

DRUGS (5)
  1. ZYPREXA VELOTAB [Suspect]
     Indication: SCHIZOPHRENIA
     Dosage: 2.5 MG, EACH EVENING
     Route: 048
     Dates: start: 2000, end: 20121121
  2. ZYPREXA VELOTAB [Suspect]
     Dosage: 5 MG, PRN
     Route: 048
  3. ZYPREXA VELOTAB [Suspect]
     Dosage: 1 DF, PRN
     Route: 048
  4. ZYPREXA VELOTAB [Suspect]
     Dosage: 5 MG, TID
     Dates: start: 201303
  5. NORMABEL [Concomitant]
     Dosage: 2 MG, PRN

REACTIONS (2)
  - Premature separation of placenta [Unknown]
  - Maternal exposure timing unspecified [Unknown]
